FAERS Safety Report 5084765-4 (Version None)
Quarter: 2006Q3

REPORT INFORMATION
  Report Type: 
  Country: None (occurrence: None)
  Receive Date: 20060815
  Receipt Date: 20060727
  Transmission Date: 20061208
  Serious: Yes (Death, Other)
  Sender: FDA-Public Use
  Company Number: BR200607005336

PATIENT
  Age: 68 Year
  Sex: Female

DRUGS (3)
  1. FORTEO [Suspect]
     Indication: OSTEOPOROSIS
     Dosage: 20 UG, DAILY (1/D), SUBCUTANEOUS
     Route: 058
     Dates: start: 20060313, end: 20060316
  2. FORTEO [Concomitant]
  3. CORTICOSTEROIDS [Concomitant]

REACTIONS (3)
  - LUNG INFECTION [None]
  - PNEUMONIA [None]
  - SEPSIS [None]
